FAERS Safety Report 15833654 (Version 1)
Quarter: 2019Q1

REPORT INFORMATION
  Report Type: Spontaneous
  Country: PE (occurrence: PE)
  Receive Date: 20190116
  Receipt Date: 20190116
  Transmission Date: 20190417
  Serious: Yes (Death)
  Sender: FDA-Public Use
  Company Number: PE-PFIZER INC-2019018435

PATIENT
  Sex: Female
  Weight: 35.11 kg

DRUGS (13)
  1. STREPTOMYCIN [Suspect]
     Active Substance: STREPTOMYCIN\STREPTOMYCIN SULFATE
     Indication: TUBERCULOSIS
     Dosage: 650 MG, 1X/DAY
     Route: 030
     Dates: start: 20171019, end: 20171117
  2. CLOFAZIMINE [Suspect]
     Active Substance: CLOFAZIMINE
     Dosage: 100 MG, 1X/DAY
     Route: 048
     Dates: start: 201712, end: 20181218
  3. CYCLOSERINE. [Suspect]
     Active Substance: CYCLOSERINE
     Indication: TUBERCULOSIS
     Dosage: 250 MG, 1X/DAY
     Route: 048
     Dates: start: 20180807, end: 20181218
  4. PYRAZINAMIDE. [Suspect]
     Active Substance: PYRAZINAMIDE
     Indication: TUBERCULOSIS
     Dosage: 1250 MG, 1X/DAY
     Route: 048
     Dates: start: 20171019, end: 20181218
  5. BEDAQUILINE [Suspect]
     Active Substance: BEDAQUILINE
     Dosage: 200 MG, UNK (THREE TIMES AWEEK)
     Route: 048
     Dates: start: 201711, end: 20180921
  6. ETHAMBUTOL [Suspect]
     Active Substance: ETHAMBUTOL HYDROCHLORIDE
     Indication: TUBERCULOSIS
     Dosage: 1000 MG, 1X/DAY
     Route: 048
     Dates: start: 20171019, end: 20181218
  7. BEDAQUILINE [Suspect]
     Active Substance: BEDAQUILINE
     Indication: TUBERCULOSIS
     Dosage: 400 MG, 1X/DAY (14 DOSES)
     Route: 048
     Dates: start: 20171019, end: 201711
  8. CLOFAZIMINE [Suspect]
     Active Substance: CLOFAZIMINE
     Indication: TUBERCULOSIS
     Dosage: 200 MG, 1X/DAY
     Route: 048
     Dates: start: 20171019, end: 201712
  9. LINEZOLID. [Suspect]
     Active Substance: LINEZOLID
     Indication: TUBERCULOSIS
     Dosage: 600 MG, DAILY
     Route: 048
     Dates: start: 20171019, end: 20180517
  10. LINEZOLID. [Suspect]
     Active Substance: LINEZOLID
     Dosage: 600 MG, 1X/DAY
     Route: 048
     Dates: start: 20171019, end: 20180529
  11. DELAMANID [Suspect]
     Active Substance: DELAMANID
     Indication: TUBERCULOSIS
     Dosage: 200 MG, 1X/DAY
     Route: 048
     Dates: end: 20180517
  12. CAPREOMYCIN [Suspect]
     Active Substance: CAPREOMYCIN
     Indication: TUBERCULOSIS
     Dosage: 500 MG, 1X/DAY
     Route: 048
     Dates: start: 20180807, end: 20181218
  13. PYRIDOXINE [Concomitant]
     Active Substance: PYRIDOXINE
     Dosage: UNK
     Dates: start: 20171019, end: 20181218

REACTIONS (2)
  - Cardiopulmonary failure [Fatal]
  - Sputum culture positive [Unknown]

NARRATIVE: CASE EVENT DATE: 20181219
